FAERS Safety Report 22348704 (Version 1)
Quarter: 2023Q2

REPORT INFORMATION
  Report Type: Spontaneous
  Country: CN (occurrence: CN)
  Receive Date: 20230522
  Receipt Date: 20230522
  Transmission Date: 20230722
  Serious: Yes (Hospitalization)
  Sender: FDA-Public Use
  Company Number: CN-STRIDES ARCOLAB LIMITED-2023SP007311

PATIENT
  Age: 34 Year
  Sex: Female

DRUGS (6)
  1. AMOXICILLIN [Suspect]
     Active Substance: AMOXICILLIN
     Indication: Helicobacter gastritis
     Dosage: 1 GRAM, BID; AUADRUPLE THERAPY: AFTER MEALS; WITH 14 DAYS AS A CYCLE OF TREATMENT
     Route: 048
     Dates: start: 202005, end: 202005
  2. ESOMEPRAZOLE [Suspect]
     Active Substance: ESOMEPRAZOLE
     Indication: Helicobacter gastritis
     Dosage: 40 MILLIGRAM; PER DAY; QUADRUPLE THERAPY: BEFORE MEAL; WITH 14 DAYS AS A CYCLE OF TREATMENT
     Route: 048
     Dates: start: 202005, end: 202005
  3. FURAZOLIDONE [Suspect]
     Active Substance: FURAZOLIDONE
     Indication: Helicobacter gastritis
     Dosage: 0.1 GRAM, BID; QUADRUPLE THERAPY: AFTER MEALS; WITH 14 DAYS AS A CYCLE OF TREATMENT
     Route: 048
     Dates: start: 202005, end: 202005
  4. FURAZOLIDONE [Suspect]
     Active Substance: FURAZOLIDONE
     Dosage: UNK
     Route: 065
     Dates: start: 202005
  5. BISMUTH [Concomitant]
     Active Substance: BISMUTH
     Indication: Helicobacter gastritis
     Dosage: 150 MILLIGRAM, TID; QUADRUPLE THERAPY: THREE TIMES DAILY BEFORE MEAL; WITH 14 DAYS AS A CYCLE OF TRE
     Route: 048
     Dates: start: 202005, end: 202005
  6. IBUPROFEN [Concomitant]
     Active Substance: IBUPROFEN
     Indication: Product used for unknown indication
     Dosage: UNK
     Route: 065
     Dates: start: 202005

REACTIONS (1)
  - Drug-induced liver injury [Recovered/Resolved]

NARRATIVE: CASE EVENT DATE: 20200501
